FAERS Safety Report 12946201 (Version 1)
Quarter: 2016Q4

REPORT INFORMATION
  Report Type: Spontaneous
  Country: US (occurrence: US)
  Receive Date: 20161116
  Receipt Date: 20161116
  Transmission Date: 20170207
  Serious: Yes (Death, Other)
  Sender: FDA-Public Use
  Company Number: US-DRREDDYS-USA/USA/16/0084795

PATIENT
  Sex: Male

DRUGS (2)
  1. SIMVASTATIN. [Suspect]
     Active Substance: SIMVASTATIN
     Indication: HYPERLIPIDAEMIA
     Route: 065
  2. TEMAZEPAM. [Suspect]
     Active Substance: TEMAZEPAM
     Indication: SLEEP DISORDER
     Dosage: 15-30 MG
     Route: 065

REACTIONS (10)
  - Depressed mood [Unknown]
  - Nausea [Unknown]
  - Adjustment disorder [Unknown]
  - Insomnia [Unknown]
  - Chest discomfort [Unknown]
  - Completed suicide [Fatal]
  - Non-alcoholic fatty liver [Unknown]
  - Rash [Unknown]
  - Cognitive disorder [Unknown]
  - Temperature regulation disorder [Unknown]
